FAERS Safety Report 6893435-9 (Version None)
Quarter: 2010Q3

REPORT INFORMATION
  Report Type: 
  Country: None (occurrence: None)
  Receive Date: 20100731
  Receipt Date: 20090911
  Transmission Date: 20110219
  Serious: No
  Sender: FDA-Public Use
  Company Number: US-PFIZER INC-2009268617

PATIENT
  Sex: Female
  Weight: 69.9 kg

DRUGS (1)
  1. VIBRAMYCIN [Suspect]
     Dosage: 100 MG, 2X/DAY
     Dates: start: 20090910

REACTIONS (7)
  - DISBACTERIOSIS [None]
  - HEADACHE [None]
  - IMMUNE SYSTEM DISORDER [None]
  - MALAISE [None]
  - MIGRAINE [None]
  - NAUSEA [None]
  - VOMITING [None]
